FAERS Safety Report 8272549-5 (Version None)
Quarter: 2012Q2

REPORT INFORMATION
  Report Type: 
  Country: None (occurrence: None)
  Receive Date: 20120410
  Receipt Date: 20120328
  Transmission Date: 20120825
  Serious: Yes (Hospitalization)
  Sender: FDA-Public Use
  Company Number: JP-ROCHE-633619

PATIENT
  Sex: Female

DRUGS (38)
  1. CYCLOPHOSPHAMIDE [Suspect]
     Indication: PRODUCT USED FOR UNKNOWN INDICATION
     Route: 065
  2. PREDNISOLONE [Suspect]
     Route: 048
     Dates: start: 20090722, end: 20090820
  3. DEXAMETHASONE ACETATE [Suspect]
     Indication: CASTLEMAN'S DISEASE
     Route: 041
  4. TRANDOLAPRIL [Concomitant]
     Route: 048
  5. URSO 250 [Concomitant]
     Route: 048
  6. FAMOTIDINE [Concomitant]
     Route: 048
  7. NASONEX [Concomitant]
     Dosage: DOSE FORM: NASAL DROP. DRUG NAME REPORTED AS NASONEX(MOMETASONE FUROATE HYDRATE)
     Route: 050
     Dates: start: 20100226, end: 20100923
  8. ACTEMRA [Suspect]
     Indication: CASTLEMAN'S DISEASE
     Route: 041
     Dates: start: 20090313, end: 20090410
  9. ACTEMRA [Suspect]
     Route: 041
  10. DOXORUBICIN HCL [Suspect]
     Indication: CASTLEMAN'S DISEASE
     Route: 041
  11. TRANDOLAPRIL [Concomitant]
     Route: 048
  12. OXICONAZOLE NITRATE [Concomitant]
     Dosage: FORM: INSERTION PREPARATION.
     Route: 067
     Dates: start: 20090807, end: 20100923
  13. ZOLPIDEM [Concomitant]
     Route: 048
  14. PREDNISOLONE [Suspect]
     Dosage: FORM TABLET,ROUTE ORAL
     Route: 048
     Dates: start: 20090821, end: 20090916
  15. PREDNISOLONE [Suspect]
     Route: 048
     Dates: start: 20090918, end: 20100205
  16. PREDNISOLONE [Suspect]
     Route: 048
     Dates: start: 20090821, end: 20090917
  17. ALLOPURINOL [Concomitant]
     Route: 048
  18. ACTEMRA [Suspect]
     Route: 041
     Dates: start: 20100115, end: 20110107
  19. PREDNISOLONE [Suspect]
     Route: 048
  20. AZATHIOPRINE [Suspect]
     Indication: PRODUCT USED FOR UNKNOWN INDICATION
     Route: 048
  21. INTAL [Concomitant]
     Dosage: DRUG NAME REPORTED AS INTAL(SODIUM CROMOGLICATE). NOTE: 1-2 DROPS SEVERAL TIMES A DAY
     Route: 047
     Dates: start: 20100226, end: 20100923
  22. PREDNISOLONE [Suspect]
     Indication: CASTLEMAN'S DISEASE
     Route: 048
  23. PREDNISOLONE [Suspect]
     Dosage: ADMINISTERED EVERY OTHER DAY
     Route: 048
     Dates: start: 20090401, end: 20090721
  24. PREDNISOLONE [Suspect]
     Dosage: FORM :TABLET,ROUTE :ORAL
     Route: 048
     Dates: start: 20090822, end: 20090916
  25. ACTONEL [Concomitant]
     Route: 048
  26. ACTEMRA [Suspect]
     Route: 041
     Dates: start: 20090501, end: 20091211
  27. PREDNISOLONE [Suspect]
     Dosage: ADMINISTERED EVERY OTHER DAY
     Route: 048
     Dates: start: 20090402, end: 20090721
  28. PREDNISOLONE [Suspect]
     Route: 048
     Dates: start: 20090401, end: 20090721
  29. ROCALTROL [Concomitant]
     Route: 048
  30. TRANDOLAPRIL [Concomitant]
     Route: 048
     Dates: start: 20090529, end: 20090625
  31. LASIX [Concomitant]
     Route: 048
  32. MIZORIBINE [Suspect]
     Indication: CASTLEMAN'S DISEASE
     Route: 048
  33. TRICHLORMETHIAZIDE [Concomitant]
     Route: 048
  34. VINCRISTINE SULFATE [Suspect]
     Indication: CASTLEMAN'S DISEASE
     Dosage: DRUG REPORTED:ONCOVIN
     Route: 041
  35. PERSANTIN [Concomitant]
     Dosage: DRUG: PERSANTIN-L; FORM: SUSTAINED RELEASE CAPSULE
     Route: 048
  36. LIPITOR [Concomitant]
     Route: 048
  37. CALCIUM CARBONATE [Concomitant]
     Route: 048
  38. SULFAMETHOXAZOLE AND TRIMETHOPRIM [Concomitant]
     Route: 048

REACTIONS (4)
  - HAEMORRHOIDS [None]
  - INFLUENZA [None]
  - HYPOGAMMAGLOBULINAEMIA [None]
  - ARTHRALGIA [None]
